FAERS Safety Report 9893675 (Version 1)
Quarter: 2014Q1

REPORT INFORMATION
  Report Type: Spontaneous
  Country: US (occurrence: US)
  Receive Date: 20140213
  Receipt Date: 20140213
  Transmission Date: 20141002
  Serious: Yes (Other)
  Sender: FDA-Public Use
  Company Number: US-PFIZER INC-2014040673

PATIENT
  Age: 54 Year
  Sex: Male

DRUGS (1)
  1. SKELAXIN [Suspect]
     Dosage: UNK

REACTIONS (4)
  - Intervertebral disc protrusion [Unknown]
  - Exostosis [Unknown]
  - Dizziness [Unknown]
  - Drug effect incomplete [Unknown]
